FAERS Safety Report 12205269 (Version 1)
Quarter: 2016Q1

REPORT INFORMATION
  Report Type: Spontaneous
  Country: US (occurrence: US)
  Receive Date: 20160323
  Receipt Date: 20160323
  Transmission Date: 20160526
  Serious: Yes (Other)
  Sender: FDA-Public Use
  Company Number: US-PFIZER INC-2016162558

PATIENT
  Age: 57 Year
  Sex: Female
  Weight: 74.83 kg

DRUGS (43)
  1. ALIGN [Concomitant]
     Active Substance: BIFIDOBACTERIUM LONGUM SUBSP. INFANTIS
     Dosage: UNK
  2. DULERA [Concomitant]
     Active Substance: FORMOTEROL FUMARATE DIHYDRATE\MOMETASONE FUROATE
     Dosage: 2 INHALATIONS INTO THE LUNGS 2 TIMES DAILY (STREGNTH FORMOTEROL FUMARATE 200 MCG, MOMETASONE 5 MCG)
  3. LIDOCAINE. [Concomitant]
     Active Substance: LIDOCAINE
     Dosage: 1 PATCH ONCE DAILY (MAY WEAR UP TO 12HOURS)
     Route: 062
  4. ONDANSETRON HCL [Concomitant]
     Active Substance: ONDANSETRON HYDROCHLORIDE
     Dosage: 8 MG, UNK
  5. QVAR [Concomitant]
     Active Substance: BECLOMETHASONE DIPROPIONATE
     Dosage: 2 INHALATIONS INTO THE LUNGS TWO TIMES DAILY (STRENGTH 40 MCG/ACTUATION)
  6. RANITIDINE [Concomitant]
     Active Substance: RANITIDINE\RANITIDINE HYDROCHLORIDE
     Dosage: 300MG TWICE A DAY
  7. SULFAMETHOXAZOLE/TRIMETHOPRIM [Concomitant]
     Dosage: STRENGTH SULFAMETHOXAZOLE 800 MG, TRIMETHOPRIM 160 MG TABLET
  8. ESTRACE [Concomitant]
     Active Substance: ESTRADIOL
     Dosage: AT 1G 3 TIMES A WEEK,  STRENGTH 0.01% (0.1 MG/GRAM)
     Route: 067
  9. FOLIC ACID. [Concomitant]
     Active Substance: FOLIC ACID
     Dosage: 3MG EVERY DAY
  10. METHYLPREDNISOLONE. [Concomitant]
     Active Substance: METHYLPREDNISOLONE
     Dosage: 4 MG, UNK (IN A DOSE PACK)
  11. NEXIUM [Concomitant]
     Active Substance: ESOMEPRAZOLE MAGNESIUM
     Dosage: 40MG EVERY DAY
  12. TOPIRAMATE. [Concomitant]
     Active Substance: TOPIRAMATE
     Dosage: 200 MG, UNK
  13. CELEBREX [Suspect]
     Active Substance: CELECOXIB
     Dosage: 200 MG, 2X/DAY
     Route: 048
  14. ZYRTEC [Suspect]
     Active Substance: CETIRIZINE HYDROCHLORIDE
     Dosage: 10 MG, DAILY
  15. CHERATUSSIN AC [Concomitant]
     Active Substance: CODEINE PHOSPHATE\GUAIFENESIN
     Indication: COUGH
     Dosage: 5 ML, AS NEEDED EVERY 6 HOURS (STRENGTH CODEINE PHOSPHATE 10MG, GUAIFENESIN 100MG/5ML)
     Route: 048
  16. CYCLOBENZAPRINE [Concomitant]
     Active Substance: CYCLOBENZAPRINE
     Dosage: 10MG 3 TIMES A DAY AS NEEDED
     Route: 048
  17. METHOTREXATE SODIUM. [Concomitant]
     Active Substance: METHOTREXATE SODIUM
     Dosage: AT 1ML (25 MG) EVERY WEEK
  18. MUPIROCIN. [Concomitant]
     Active Substance: MUPIROCIN
     Dosage: STRENGTH 2 % TOPICAL OINTMENT
     Route: 061
  19. ONDANSETRON HCL [Concomitant]
     Active Substance: ONDANSETRON HYDROCHLORIDE
     Dosage: 4 MG, EVERY 8 HOURS AS NEEDED
  20. OXYBUTYNIN CHLORIDE. [Concomitant]
     Active Substance: OXYBUTYNIN CHLORIDE
     Dosage: 2.5MG TWICE A DAY
  21. SERTRALINE [Concomitant]
     Active Substance: SERTRALINE HYDROCHLORIDE
     Dosage: 100 MG EVERY DAY
     Route: 048
  22. SODIUM CHLORIDE. [Concomitant]
     Active Substance: SODIUM CHLORIDE
     Dosage: 0.9% IRRIGATION SOLUTION
  23. AMITIZA [Concomitant]
     Active Substance: LUBIPROSTONE
     Dosage: 24MCG CAPSULE AT 1 CAPSULE TWICE A DAY
     Route: 048
  24. TUBERCULIN NOS [Concomitant]
     Active Substance: TUBERCULIN PURIFIED PROTEIN DERIVATIVE
     Dosage: (BD TUBERCULIN SYRINGE 1ML 25 X 5/8^) USE AS DIRECTED PER PHYSICIAN^S INSTRUCTION
  25. CRESTOR [Concomitant]
     Active Substance: ROSUVASTATIN CALCIUM
     Dosage: 20MG EVERY DAY
     Route: 048
  26. DIAZEPAM. [Concomitant]
     Active Substance: DIAZEPAM
     Dosage: 5 MG EVERY 12 HOURS AS NEEDED
     Route: 048
  27. FLUCONAZOLE. [Concomitant]
     Active Substance: FLUCONAZOLE
     Indication: VAGINAL INFECTION
     Dosage: 200 MG, WEEKLY
     Route: 048
  28. LINEZOLID. [Concomitant]
     Active Substance: LINEZOLID
     Dosage: 600 MG, UNK
  29. SIMPONI [Concomitant]
     Active Substance: GOLIMUMAB
     Dosage: 50 MG ONCE A MONTH
     Route: 058
  30. XOPENEX HFA [Concomitant]
     Active Substance: LEVALBUTEROL TARTRATE
     Dosage: STRENGTH 45 MCG/ACTUATION AEROSOL INHALER
  31. BACTROBAN [Concomitant]
     Active Substance: MUPIROCIN\MUPIROCIN CALCIUM
     Dosage: NASAL 2% OINTMENT APPLIED TWICE A DAY
     Route: 045
  32. BIOTIN [Concomitant]
     Active Substance: BIOTIN
     Dosage: UNK
  33. ERGOCALCIFEROL. [Concomitant]
     Active Substance: ERGOCALCIFEROL
     Dosage: 50000 IU, TWICE A MONTH
     Route: 048
  34. GABAPENTIN. [Concomitant]
     Active Substance: GABAPENTIN
     Dosage: 300 MG, 3X/DAY
  35. KLOR-CON [Concomitant]
     Active Substance: POTASSIUM CHLORIDE
     Dosage: 10 MEQ, DAILY
  36. XOPENEX [Concomitant]
     Active Substance: LEVALBUTEROL HYDROCHLORIDE
     Dosage: 3 ML, AS NEEDED (1.25 MG/3 ML SOLUTION FOR NEBULIZATION)
  37. FLUTICASONE [Concomitant]
     Active Substance: FLUTICASONE\FLUTICASONE PROPIONATE
     Dosage: 1 SPRAY TWICE A DAY (STRENGTH 50 MCG/ACTUATION NASAL SPRAY)
  38. MONTELUKAST [Concomitant]
     Active Substance: MONTELUKAST SODIUM
     Dosage: 10 MG TOTAL NIGHTLY
     Route: 048
  39. PREDNISONE. [Concomitant]
     Active Substance: PREDNISONE
     Dosage: 10 MG, UNK
  40. SULFASALAZINE. [Concomitant]
     Active Substance: SULFASALAZINE
     Dosage: 1000 MG TWICE A DAY WITH FOOD
     Route: 048
  41. OXYCODONE [Concomitant]
     Active Substance: OXYCODONE
     Indication: PAIN
     Dosage: 5 MG, AS NEEDED (3 TIMES A DAY AS NEEDED FOR PAIN)
     Route: 048
  42. SUMATRIPTAN. [Concomitant]
     Active Substance: SUMATRIPTAN
     Dosage: 100 MG, UNK
  43. ZOLPIDEM [Concomitant]
     Active Substance: ZOLPIDEM\ZOLPIDEM TARTRATE
     Dosage: 10 MG AT BEDTIME

REACTIONS (25)
  - Headache [Unknown]
  - Dry eye [Unknown]
  - Sinusitis bacterial [Unknown]
  - Asthma [Unknown]
  - Condition aggravated [Unknown]
  - Appetite disorder [Unknown]
  - Increased tendency to bruise [Unknown]
  - Arthralgia [Unknown]
  - Cushingoid [Unknown]
  - Nausea [Unknown]
  - Dry mouth [Unknown]
  - Depression [Unknown]
  - Ankylosing spondylitis [Unknown]
  - Diabetic neuropathy [Unknown]
  - Diarrhoea [Unknown]
  - Asthenia [Unknown]
  - Night sweats [Unknown]
  - Dysphonia [Unknown]
  - Weight increased [Unknown]
  - Osteoarthritis [Unknown]
  - Ear pain [Unknown]
  - Poor quality sleep [Unknown]
  - Staphylococcal infection [Unknown]
  - Radiculopathy [Unknown]
  - Joint range of motion decreased [Unknown]
